FAERS Safety Report 9530762 (Version 1)
Quarter: 2013Q2

REPORT INFORMATION
  Report Type: Spontaneous
  Country: US (occurrence: None)
  Receive Date: 20130418
  Receipt Date: 20130418
  Transmission Date: 20140414
  Serious: Yes (Other)
  Sender: FDA-Public Use
  Company Number: 0909USA03233

PATIENT
  Age: 06 Year
  Sex: Female
  Weight: 16 kg

DRUGS (1)
  1. SINGULAIR [Suspect]
     Indication: ASTHMA
     Dosage: ORAL
     Route: 048
     Dates: start: 20030222, end: 20041101

REACTIONS (2)
  - Anxiety [None]
  - Abdominal pain upper [None]
